FAERS Safety Report 10686670 (Version 8)
Quarter: 2018Q4

REPORT INFORMATION
  Report Type: Report from Study
  Country: JP (occurrence: JP)
  Receive Date: 20150101
  Receipt Date: 20181005
  Transmission Date: 20190204
  Serious: Yes (Other)
  Sender: FDA-Public Use
  Company Number: JP-ALEXION PHARMACEUTICALS INC.-A201403216

PATIENT
  Age: 3 Year
  Sex: Male
  Weight: 9 kg

DRUGS (10)
  1. SOLIRIS [Suspect]
     Active Substance: ECULIZUMAB
     Indication: ATYPICAL HAEMOLYTIC URAEMIC SYNDROME
     Dosage: 300 MG, QW
     Route: 042
     Dates: start: 20130522
  2. AMLODIN [Concomitant]
     Active Substance: AMLODIPINE BESYLATE
     Indication: HYPERTENSION
     Dosage: 1.5 MG, QD
     Route: 048
     Dates: start: 20140402, end: 20140423
  3. LONGES [Concomitant]
     Active Substance: LISINOPRIL
     Dosage: 1 MG, QD
     Route: 048
     Dates: start: 20140918
  4. AMLODIN [Concomitant]
     Active Substance: AMLODIPINE BESYLATE
     Dosage: 1.25 MG, BID
     Route: 048
     Dates: start: 20180319, end: 20180516
  5. LONGES [Concomitant]
     Active Substance: LISINOPRIL
     Dosage: 3 MG, QD
     Route: 048
     Dates: start: 20140715, end: 20140907
  6. SOLIRIS [Suspect]
     Active Substance: ECULIZUMAB
     Dosage: 300 MG, Q3W
     Route: 042
     Dates: start: 20130529
  7. AMLODIN [Concomitant]
     Active Substance: AMLODIPINE BESYLATE
     Dosage: 1.25 MG, BID
     Route: 048
     Dates: start: 20140424, end: 20171211
  8. AMLODIN [Concomitant]
     Active Substance: AMLODIPINE BESYLATE
     Dosage: 2 MG, BID
     Route: 048
     Dates: start: 20180517
  9. LONGES [Concomitant]
     Active Substance: LISINOPRIL
     Indication: HYPERTENSION
     Dosage: 2.5 MG, QD
     Route: 048
     Dates: start: 20140106, end: 20140714
  10. LONGES [Concomitant]
     Active Substance: LISINOPRIL
     Dosage: 1 MG, QD
     Route: 048
     Dates: start: 20170714, end: 20171003

REACTIONS (2)
  - Device related infection [Recovered/Resolved]
  - Secondary hypertension [Not Recovered/Not Resolved]

NARRATIVE: CASE EVENT DATE: 20130524
